FAERS Safety Report 10297394 (Version 2)
Quarter: 2014Q3

REPORT INFORMATION
  Report Type: Spontaneous
  Country: US (occurrence: US)
  Receive Date: 20140711
  Receipt Date: 20140827
  Transmission Date: 20150326
  Serious: Yes (Hospitalization, Other)
  Sender: FDA-Public Use
  Company Number: US-CELGENEUS-163-CCAZA-14070105

PATIENT
  Age: 80 Year
  Sex: Male

DRUGS (5)
  1. PRACINOSTAT [Suspect]
     Active Substance: PRACINOSTAT
     Indication: ACUTE MYELOID LEUKAEMIA
     Route: 048
     Dates: start: 20140512
  2. PRACINOSTAT [Suspect]
     Active Substance: PRACINOSTAT
     Route: 048
     Dates: start: 20140609
  3. AZACITIDINE INJECTABLE [Suspect]
     Active Substance: AZACITIDINE
     Route: 058
     Dates: start: 20140609, end: 20140613
  4. AZACITIDINE INJECTABLE [Suspect]
     Active Substance: AZACITIDINE
     Indication: ACUTE MYELOID LEUKAEMIA
     Route: 058
     Dates: start: 20140512, end: 20140520
  5. RED BLOOD CELLS [Concomitant]
     Active Substance: HUMAN RED BLOOD CELL
     Indication: EPISTAXIS
     Route: 041
     Dates: start: 20140616, end: 20140616

REACTIONS (3)
  - Hypoxia [Unknown]
  - Lung infiltration [Unknown]
  - Thrombocytopenia [Recovered/Resolved]

NARRATIVE: CASE EVENT DATE: 20140615
